FAERS Safety Report 7546087-9 (Version None)
Quarter: 2011Q2

REPORT INFORMATION
  Report Type: 
  Country: None (occurrence: None)
  Receive Date: 20110614
  Receipt Date: 20110608
  Transmission Date: 20111010
  Serious: Yes (Death)
  Sender: FDA-Public Use
  Company Number: PHHY2011US51025

PATIENT
  Sex: Male

DRUGS (2)
  1. EXJADE [Suspect]
     Dosage: 2000 MG, QD
     Route: 048
  2. CHEMOTHERAPEUTICS NOS [Concomitant]

REACTIONS (1)
  - DEATH [None]
